FAERS Safety Report 7432685-X (Version None)
Quarter: 2011Q2

REPORT INFORMATION
  Report Type: 
  Country: None (occurrence: None)
  Receive Date: 20110422
  Receipt Date: 20110419
  Transmission Date: 20111010
  Serious: Yes (Other)
  Sender: FDA-Public Use
  Company Number: A0803990A

PATIENT
  Age: 64 Year
  Sex: Female

DRUGS (7)
  1. BONIVA [Concomitant]
  2. TRILIPIX [Concomitant]
  3. VITAMIN TAB [Concomitant]
  4. LIPITOR [Concomitant]
  5. EVISTA [Concomitant]
  6. OMEPRAZOLE [Concomitant]
  7. ALLI [Suspect]
     Indication: WEIGHT LOSS DIET
     Route: 048
     Dates: start: 20080301

REACTIONS (12)
  - RECTAL DISCHARGE [None]
  - DEFAECATION URGENCY [None]
  - INVESTIGATION [None]
  - CONSTIPATION [None]
  - HEPATIC ENZYME INCREASED [None]
  - ABDOMINAL PAIN [None]
  - DIVERTICULITIS [None]
  - ULTRASOUND SCAN [None]
  - ALANINE AMINOTRANSFERASE INCREASED [None]
  - TREATMENT NONCOMPLIANCE [None]
  - ABDOMINAL PAIN UPPER [None]
  - ASPARTATE AMINOTRANSFERASE INCREASED [None]
